FAERS Safety Report 23852622 (Version 1)
Quarter: 2024Q2

REPORT INFORMATION
  Report Type: Spontaneous
  Country: US (occurrence: US)
  Receive Date: 20240514
  Receipt Date: 20240514
  Transmission Date: 20240716
  Serious: Yes (Other)
  Sender: FDA-Public Use
  Company Number: US-MYLANLABS-2024M1020591

PATIENT
  Age: 23 Year
  Sex: Female
  Weight: 68.027 kg

DRUGS (1)
  1. TYRVAYA [Suspect]
     Active Substance: VARENICLINE TARTRATE
     Indication: Product used for unknown indication
     Dosage: UNK (ONE SPRAY NASAL INTO BOTH NOSTRIL)
     Route: 065

REACTIONS (3)
  - Choking [Unknown]
  - Adverse event [Unknown]
  - Dyspnoea [Unknown]
